FAERS Safety Report 9038823 (Version 1)
Quarter: 2013Q1

REPORT INFORMATION
  Report Type: Spontaneous
  Country: CA (occurrence: None)
  Receive Date: 20130123
  Receipt Date: 20130123
  Transmission Date: 20140127
  Serious: Yes (Death)
  Sender: FDA-Public Use
  Company Number: None

PATIENT
  Age: 68 Year
  Sex: Male
  Weight: 75.75 kg

DRUGS (2)
  1. CIPRALEX [Suspect]
     Indication: DEPRESSION
     Dosage: 20 MG (FOR 2 DAYS)  AM  BY MOUTH?SEPT  5-19 / 12
     Route: 048
     Dates: start: 20120905, end: 20120919
  2. QUETIAPINE [Suspect]
     Dosage: 25  MG  PM   BY MOUTH?SEPT.  11 - 19 / 12
     Route: 048
     Dates: start: 20120911, end: 20120919

REACTIONS (7)
  - Insomnia [None]
  - Feeling cold [None]
  - Cold sweat [None]
  - Hyperhidrosis [None]
  - Sexual dysfunction [None]
  - Completed suicide [None]
  - Asphyxia [None]
